FAERS Safety Report 8436739-0 (Version None)
Quarter: 2012Q2

REPORT INFORMATION
  Report Type: 
  Country: None (occurrence: None)
  Receive Date: 20120614
  Receipt Date: 20120608
  Transmission Date: 20120825
  Serious: Yes (Other)
  Sender: FDA-Public Use
  Company Number: US-MERCK-1202USA02280

PATIENT
  Sex: Female

DRUGS (7)
  1. FOSAMAX [Suspect]
     Route: 048
     Dates: start: 20041201, end: 20061001
  2. ACTONEL [Suspect]
     Indication: OSTEOPENIA
     Route: 048
     Dates: start: 20080101, end: 20100301
  3. ACTONEL [Suspect]
     Route: 048
     Dates: start: 20080801, end: 20080901
  4. VITAMINS (UNSPECIFIED) [Concomitant]
     Route: 065
     Dates: start: 19900101
  5. FOSAMAX [Suspect]
     Indication: OSTEOPENIA
     Route: 048
     Dates: start: 20001101, end: 20011001
  6. FOSAMAX [Suspect]
     Route: 048
     Dates: start: 20011101, end: 20041201
  7. CALCIUM (UNSPECIFIED) [Concomitant]
     Route: 065
     Dates: start: 19900101

REACTIONS (11)
  - FEMUR FRACTURE [None]
  - GINGIVAL DISORDER [None]
  - IMPAIRED HEALING [None]
  - AUTOIMMUNE THYROIDITIS [None]
  - FRACTURE NONUNION [None]
  - ADVERSE EVENT [None]
  - HYPOTHYROIDISM [None]
  - HYPOPARATHYROIDISM [None]
  - TOOTH DISORDER [None]
  - FOOT FRACTURE [None]
  - LOW TURNOVER OSTEOPATHY [None]
